FAERS Safety Report 4307151-0 (Version None)
Quarter: 2004Q1

REPORT INFORMATION
  Report Type: 
  Country: None (occurrence: None)
  Receive Date: 20040227
  Receipt Date: 20040218
  Transmission Date: 20041129
  Serious: Yes (Hospitalization)
  Sender: FDA-Public Use
  Company Number: PHHO2004BE02564

PATIENT
  Age: 59 Year
  Sex: Male
  Weight: 85 kg

DRUGS (3)
  1. NEORAL [Suspect]
     Indication: LIVER TRANSPLANT
     Dosage: 100 MG, BID
     Route: 048
     Dates: start: 20020829, end: 20040107
  2. CELLCEPT [Concomitant]
     Indication: LIVER TRANSPLANT
     Dosage: 500 MG, BID
     Route: 048
  3. MEDROL [Concomitant]
     Indication: LIVER TRANSPLANT
     Dosage: 4 MG / DAY
     Route: 048

REACTIONS (3)
  - DIABETES MELLITUS [None]
  - HYPERGLYCAEMIA [None]
  - LIVER TRANSPLANT REJECTION [None]
